FAERS Safety Report 4804205-7 (Version None)
Quarter: 2005Q4

REPORT INFORMATION
  Report Type: 
  Country: None (occurrence: None)
  Receive Date: 20051017
  Receipt Date: 20051003
  Transmission Date: 20060501
  Serious: Yes (Death)
  Sender: FDA-Public Use
  Company Number: B0395832A

PATIENT
  Age: 42 Year
  Sex: 0

DRUGS (2)
  1. WELLBUTRIN SR [Suspect]
     Dosage: UNKNOWN/ORAL
     Route: 048
  2. EPHEDRINE (FORMULATION UNKNOWN) (EPHEDRINE) [Suspect]
     Dosage: UNKNOWN
     Route: 065

REACTIONS (1)
  - COMPLETED SUICIDE [None]
